FAERS Safety Report 6088493-8 (Version None)
Quarter: 2009Q1

REPORT INFORMATION
  Report Type: 
  Country: None (occurrence: None)
  Receive Date: 20090224
  Receipt Date: 20090212
  Transmission Date: 20090719
  Serious: Yes (Hospitalization)
  Sender: FDA-Public Use
  Company Number: GB-JNJFOC-20090203530

PATIENT
  Age: 50 Year
  Sex: Female
  Weight: 55 kg

DRUGS (7)
  1. REMICADE [Suspect]
     Indication: RHEUMATOID ARTHRITIS
     Route: 042
  2. FOLIC ACID [Concomitant]
  3. GLICLAZIDE [Concomitant]
  4. PREDNISOLONE [Concomitant]
  5. ASPIRIN [Concomitant]
  6. ADCAL [Concomitant]
  7. METHOTREXATE [Concomitant]

REACTIONS (2)
  - AORTIC VALVE INCOMPETENCE [None]
  - EPISCLERITIS [None]
